FAERS Safety Report 24109697 (Version 1)
Quarter: 2024Q3

REPORT INFORMATION
  Report Type: Spontaneous
  Country: CA (occurrence: CA)
  Receive Date: 20240718
  Receipt Date: 20240718
  Transmission Date: 20241017
  Serious: Yes (Life-Threatening, Hospitalization)
  Sender: PFIZER
  Company Number: CA-PFIZER INC-202400217609

PATIENT
  Age: 13 Year
  Sex: Female
  Weight: 42 kg

DRUGS (5)
  1. METHOTREXATE SODIUM [Suspect]
     Active Substance: METHOTREXATE SODIUM
     Dosage: UNK
  2. VINCRISTINE SULFATE [Suspect]
     Active Substance: VINCRISTINE SULFATE
  3. CYTARABINE [Suspect]
     Active Substance: CYTARABINE
     Dosage: INJECTION
  4. MERCAPTOPURINE [Suspect]
     Active Substance: MERCAPTOPURINE
  5. PEGASPARGASE [Suspect]
     Active Substance: PEGASPARGASE
     Route: 065

REACTIONS (1)
  - Febrile neutropenia [Recovered/Resolved]
